FAERS Safety Report 9220490 (Version 2)
Quarter: 2013Q2

REPORT INFORMATION
  Report Type: Spontaneous
  Country: US (occurrence: US)
  Receive Date: 20130409
  Receipt Date: 20130502
  Transmission Date: 20140414
  Serious: No
  Sender: FDA-Public Use
  Company Number: US-ASTRAZENECA-2013SE20136

PATIENT
  Age: 72 Year
  Sex: Female
  Weight: 67.1 kg

DRUGS (8)
  1. TENORMIN [Suspect]
     Indication: VENTRICULAR EXTRASYSTOLES
     Dosage: ONE HALF TABLET, TWO TIMES A DAY
     Route: 048
     Dates: start: 1983
  2. TENORMIN [Suspect]
     Indication: BLOOD PRESSURE ABNORMAL
     Dosage: ONE HALF TABLET, TWO TIMES A DAY
     Route: 048
     Dates: start: 1983
  3. TENORMIN [Suspect]
     Indication: VENTRICULAR EXTRASYSTOLES
     Route: 048
     Dates: start: 201302, end: 201302
  4. TENORMIN [Suspect]
     Indication: BLOOD PRESSURE ABNORMAL
     Route: 048
     Dates: start: 201302, end: 201302
  5. TENORMIN [Suspect]
     Indication: VENTRICULAR EXTRASYSTOLES
     Route: 048
     Dates: end: 201302
  6. TENORMIN [Suspect]
     Indication: BLOOD PRESSURE ABNORMAL
     Route: 048
     Dates: end: 201302
  7. TENORMIN [Suspect]
     Indication: VENTRICULAR EXTRASYSTOLES
     Route: 048
  8. TENORMIN [Suspect]
     Indication: BLOOD PRESSURE ABNORMAL
     Route: 048

REACTIONS (3)
  - Fatigue [Recovered/Resolved]
  - Feeling abnormal [Unknown]
  - Drug ineffective [Unknown]
